FAERS Safety Report 16466068 (Version 4)
Quarter: 2020Q1

REPORT INFORMATION
  Report Type: Spontaneous
  Country: US (occurrence: US)
  Receive Date: 20190621
  Receipt Date: 20200324
  Transmission Date: 20200409
  Serious: No
  Sender: FDA-Public Use
  Company Number: US-ACORDA-ACO_158993_2019

PATIENT
  Sex: Male

DRUGS (4)
  1. INBRIJA [Suspect]
     Active Substance: LEVODOPA
     Indication: ON AND OFF PHENOMENON
  2. SINEMET [Concomitant]
     Active Substance: CARBIDOPA\LEVODOPA
     Indication: PARKINSON^S DISEASE
     Dosage: 25/100
     Route: 048
  3. FLECAINIDE [Concomitant]
     Active Substance: FLECAINIDE
     Indication: CARDIAC DISORDER
     Dosage: 1 DOSAGE FORM, BID
     Route: 048
  4. INBRIJA [Suspect]
     Active Substance: LEVODOPA
     Indication: PARKINSON^S DISEASE
     Dosage: CONTENTS OF 2 CAPSULES (84 MILLIGRAM) PRN UP TO 5 TIMES A DAY

REACTIONS (5)
  - Product residue present [Not Recovered/Not Resolved]
  - Device difficult to use [Unknown]
  - Retching [Not Recovered/Not Resolved]
  - Product use complaint [Unknown]
  - Cough [Not Recovered/Not Resolved]
